FAERS Safety Report 9473316 (Version 1)
Quarter: 2013Q3

REPORT INFORMATION
  Report Type: Spontaneous
  Country: US (occurrence: US)
  Receive Date: 20130823
  Receipt Date: 20130823
  Transmission Date: 20140515
  Serious: Yes (Other)
  Sender: FDA-Public Use
  Company Number: US-BRISTOL-MYERS SQUIBB COMPANY-18885541

PATIENT
  Age: 63 Year
  Sex: Female

DRUGS (2)
  1. SPRYCEL [Suspect]
     Dosage: 1 DF: 1 TAB
     Route: 048
     Dates: start: 20130329
  2. GLEEVEC [Suspect]
     Dates: start: 20130505

REACTIONS (1)
  - Pulmonary oedema [Unknown]
